FAERS Safety Report 14039569 (Version 2)
Quarter: 2017Q4

REPORT INFORMATION
  Report Type: Report from Study
  Country: US (occurrence: US)
  Receive Date: 20171004
  Receipt Date: 20171109
  Transmission Date: 20180321
  Serious: Yes (Other)
  Sender: FDA-Public Use
  Company Number: US-VERTEX PHARMACEUTICALS-2017-005304

PATIENT
  Sex: Female

DRUGS (1)
  1. ORKAMBI [Suspect]
     Active Substance: IVACAFTOR\LUMACAFTOR
     Indication: CYSTIC FIBROSIS
     Dosage: 100/125 MG, FREQ UNSPECIFIED
     Route: 048
     Dates: start: 20161102

REACTIONS (5)
  - Pyrexia [Recovered/Resolved]
  - Memory impairment [Not Recovered/Not Resolved]
  - Distal intestinal obstruction syndrome [Recovered/Resolved]
  - Disturbance in attention [Not Recovered/Not Resolved]
  - Cough [Recovered/Resolved]

NARRATIVE: CASE EVENT DATE: 2016
